FAERS Safety Report 25159778 (Version 1)
Quarter: 2025Q2

REPORT INFORMATION
  Report Type: Spontaneous
  Country: PL (occurrence: PL)
  Receive Date: 20250404
  Receipt Date: 20250404
  Transmission Date: 20250717
  Serious: Yes (Hospitalization)
  Sender: MYLAN
  Company Number: PL-MYLANLABS-2025M1027090

PATIENT
  Age: 47 Year
  Sex: Female

DRUGS (4)
  1. MYCOPHENOLATE MOFETIL [Suspect]
     Active Substance: MYCOPHENOLATE MOFETIL
     Indication: Immunosuppressant drug therapy
     Dosage: 250 MILLIGRAM, BID
  2. PREDNISONE [Suspect]
     Active Substance: PREDNISONE
     Indication: Immunosuppressant drug therapy
     Dosage: 5 MILLIGRAM, QD
  3. DEXAMETHASONE [Suspect]
     Active Substance: DEXAMETHASONE
     Indication: Immunosuppressant drug therapy
  4. TOBRAMYCIN [Concomitant]
     Active Substance: TOBRAMYCIN
     Indication: Evidence based treatment

REACTIONS (8)
  - Mucormycosis [Recovered/Resolved]
  - Disorder of orbit [Recovered/Resolved]
  - Acute kidney injury [Recovered/Resolved]
  - Blepharitis [Recovered/Resolved]
  - Cellulitis [Recovered/Resolved]
  - Skin necrosis [Recovered/Resolved]
  - Eyelid disorder [Recovered/Resolved]
  - Lymphadenopathy [Recovered/Resolved]
